FAERS Safety Report 7547795-6 (Version None)
Quarter: 2011Q2

REPORT INFORMATION
  Report Type: 
  Country: None (occurrence: None)
  Receive Date: 20110615
  Receipt Date: 20110606
  Transmission Date: 20111010
  Serious: Yes (Hospitalization, Other)
  Sender: FDA-Public Use
  Company Number: NL-AMGEN-NLDSP2011029631

PATIENT
  Age: 63 Year
  Sex: Female

DRUGS (6)
  1. ENBREL [Suspect]
     Indication: RHEUMATOID ARTHRITIS
     Dosage: 50 MG, WEEKLY
     Dates: start: 20101207, end: 20110301
  2. VERAPAMIL [Concomitant]
     Dosage: UNK
  3. PREDNISONE [Concomitant]
     Dosage: UNK
  4. FOLIC ACID [Concomitant]
     Dosage: UNK
  5. MTX                                /00113801/ [Concomitant]
     Dosage: UNK
  6. PANTOZOL                           /01263202/ [Concomitant]
     Dosage: UNK UNK, UNK

REACTIONS (4)
  - URINARY TRACT INFECTION [None]
  - LOWER LIMB FRACTURE [None]
  - RESPIRATORY TRACT INFECTION [None]
  - MALAISE [None]
